FAERS Safety Report 4508685-6 (Version None)
Quarter: 2004Q4

REPORT INFORMATION
  Report Type: 
  Country: None (occurrence: None)
  Receive Date: 20041123
  Receipt Date: 20040602
  Transmission Date: 20050328
  Serious: No
  Sender: FDA-Public Use
  Company Number: US-GLAXOSMITHKLINE-A0513051A

PATIENT
  Age: 49 Year
  Sex: Male

DRUGS (4)
  1. WELLBUTRIN SR [Suspect]
     Indication: DEPRESSION
     Dosage: 150MG TWICE PER DAY
     Route: 048
  2. LISINOPRIL [Concomitant]
  3. RHINOCORT [Concomitant]
  4. PROTONIX [Concomitant]

REACTIONS (1)
  - GYNAECOMASTIA [None]
